FAERS Safety Report 9399233 (Version 2)
Quarter: 2013Q3

REPORT INFORMATION
  Report Type: Spontaneous
  Country: CY (occurrence: CY)
  Receive Date: 20130710
  Receipt Date: 20130723
  Transmission Date: 20140515
  Serious: Yes (Other)
  Sender: FDA-Public Use
  Company Number: CY-1199155

PATIENT
  Age: 71 Year
  Sex: Male

DRUGS (7)
  1. NEVANAC [Suspect]
     Indication: CYSTOID MACULAR OEDEMA
     Route: 047
     Dates: start: 20130522, end: 20130605
  2. BRIMONIDINE [Suspect]
     Indication: CYSTOID MACULAR OEDEMA
     Route: 047
     Dates: start: 20130522
  3. ALUMINIUM HYDROXIDE [Concomitant]
  4. DENEX [Concomitant]
  5. TORVACARD [Concomitant]
  6. GLITISOL [Concomitant]
  7. ASPIRIN [Concomitant]

REACTIONS (5)
  - Ulcerative keratitis [None]
  - Hypopyon [None]
  - Off label use [None]
  - Streptococcus test positive [None]
  - Corneal scar [None]
